FAERS Safety Report 8032120-7 (Version None)
Quarter: 2012Q1

REPORT INFORMATION
  Report Type: 
  Country: None (occurrence: None)
  Receive Date: 20120109
  Receipt Date: 20111229
  Transmission Date: 20120608
  Serious: Yes (Other)
  Sender: FDA-Public Use
  Company Number: US-ASTRAZENECA-2011SE78886

PATIENT
  Age: 75 Year
  Sex: Female
  Weight: 70.8 kg

DRUGS (4)
  1. ZETIA [Concomitant]
  2. CRESTOR [Suspect]
     Route: 048
  3. BLOOD THINNERS [Concomitant]
  4. LIPITOR [Concomitant]

REACTIONS (4)
  - PAIN IN EXTREMITY [None]
  - MYALGIA [None]
  - THROMBOSIS [None]
  - BACK PAIN [None]
